FAERS Safety Report 18927789 (Version 2)
Quarter: 2021Q1

REPORT INFORMATION
  Report Type: Spontaneous
  Country: GB (occurrence: GB)
  Receive Date: 20210223
  Receipt Date: 20210325
  Transmission Date: 20210420
  Serious: Yes (Hospitalization)
  Sender: FDA-Public Use
  Company Number: GB-MYLANLABS-2021M1010521

PATIENT
  Age: 31 Year
  Sex: Female
  Weight: 65.4 kg

DRUGS (12)
  1. CLOZARIL [Suspect]
     Active Substance: CLOZAPINE
     Dosage: 100 MILLIGRAM, BID (TOTAL DAILY INTAKE OF 200MG ON 16/03/2021)
     Route: 048
     Dates: start: 20210316
  2. SODIUM FLUORIDE. [Concomitant]
     Active Substance: SODIUM FLUORIDE
     Dosage: 1.1 PERCENT, BID (1.1% TOOTHPASTE BD)
  3. FLUTICASONE W/FORMOTEROL [Concomitant]
     Active Substance: FLUTICASONE\FORMOTEROL
     Indication: ASTHMA
     Dosage: UNK (250/10 MICROGRAM)
  4. FEROGLOBIN                         /07308801/ [Concomitant]
     Indication: IRON DEFICIENCY
     Dosage: UNK UNK, QD (CAP ONCE DAILY)
  5. CLOZARIL [Suspect]
     Active Substance: CLOZAPINE
     Indication: SCHIZOPHRENIA
     Dosage: 100 MILLIGRAM, BID
     Route: 048
     Dates: start: 20160823
  6. CHLORPHENAMINE MALEATE [Concomitant]
     Active Substance: CHLORPHENIRAMINE MALEATE
     Indication: SEASONAL ALLERGY
     Dosage: 4 MILLIGRAM (4MG TDS)
  7. SENNA                              /00142201/ [Concomitant]
     Active Substance: SENNA LEAF
     Indication: CONSTIPATION
     Dosage: UNK (7.5?15MG OD)
  8. HUXD3 [Concomitant]
     Indication: VITAMIN D DEFICIENCY
     Dosage: 20000 INTERNATIONAL UNIT, (20000IU TWICE WEEKLY)
  9. CONOTRANE                          /00604301/ [Concomitant]
     Indication: DRY SKIN
     Dosage: UNK
  10. OMEPRAZOLE. [Concomitant]
     Active Substance: OMEPRAZOLE
     Dosage: 20 MILLIGRAM MANE
  11. ATOMOXETINE. [Concomitant]
     Active Substance: ATOMOXETINE HYDROCHLORIDE
     Indication: ATTENTION DEFICIT HYPERACTIVITY DISORDER
     Dosage: 120 MILLIGRAM (120MG MANE)
  12. HYOSCINE [Concomitant]
     Active Substance: SCOPOLAMINE
     Indication: SALIVARY HYPERSECRETION
     Dosage: 1.5 MILLIGRAM (1.5MG PATCH EVERY 72 HOURS)

REACTIONS (5)
  - Borderline personality disorder [Unknown]
  - Somatic symptom disorder [Unknown]
  - Learning disability [Unknown]
  - Mean cell volume increased [Unknown]
  - Attention deficit hyperactivity disorder [Unknown]

NARRATIVE: CASE EVENT DATE: 20210209
